FAERS Safety Report 22591412 (Version 4)
Quarter: 2024Q1

REPORT INFORMATION
  Report Type: Spontaneous
  Country: CA (occurrence: CA)
  Receive Date: 20230612
  Receipt Date: 20240202
  Transmission Date: 20240410
  Serious: Yes (Other)
  Sender: FDA-Public Use
  Company Number: CA-SA-SAC20220414000955

PATIENT

DRUGS (2)
  1. LARONIDASE [Suspect]
     Active Substance: LARONIDASE
     Indication: Mucopolysaccharidosis I
     Dosage: 36.4 MG, QW
     Route: 041
     Dates: start: 20110428
  2. LARONIDASE [Suspect]
     Active Substance: LARONIDASE
     Dosage: 37.7 MG, QW
     Route: 041
     Dates: start: 20110428

REACTIONS (5)
  - Vein rupture [Recovered/Resolved]
  - Incorrect dose administered [Unknown]
  - Scar [Not Recovered/Not Resolved]
  - Poor venous access [Not Recovered/Not Resolved]
  - Product administration interrupted [Unknown]

NARRATIVE: CASE EVENT DATE: 20230601
